FAERS Safety Report 10152940 (Version 1)
Quarter: 2014Q2

REPORT INFORMATION
  Report Type: Spontaneous
  Country: DE (occurrence: DE)
  Receive Date: 20140505
  Receipt Date: 20140505
  Transmission Date: 20141212
  Serious: Yes (Congenital Anomaly)
  Sender: FDA-Public Use
  Company Number: DE-GLAXOSMITHKLINE-D0083750A

PATIENT
  Age: 10 Week
  Sex: Male

DRUGS (3)
  1. LAMOTRIGINE [Suspect]
     Indication: EPILEPSY
     Route: 064
     Dates: start: 20130109, end: 20131010
  2. FOLIC ACID [Concomitant]
     Indication: PROPHYLAXIS OF NEURAL TUBE DEFECT
     Dosage: .8MG PER DAY
     Route: 064
     Dates: start: 20130209, end: 20131010
  3. CEFUROXIME [Concomitant]
     Indication: URINARY TRACT INFECTION BACTERIAL
     Dosage: 500MG TWICE PER DAY
     Route: 064

REACTIONS (2)
  - Cataract congenital [Recovered/Resolved with Sequelae]
  - Foetal exposure during pregnancy [Unknown]
